FAERS Safety Report 21619796 (Version 1)
Quarter: 2022Q4

REPORT INFORMATION
  Report Type: Report from Study
  Country: US (occurrence: US)
  Receive Date: 20221121
  Receipt Date: 20221121
  Transmission Date: 20230113
  Serious: No
  Sender: FDA-Public Use
  Company Number: US-ABBVIE-4174958

PATIENT
  Age: 69 Year
  Sex: Male
  Weight: 81.646 kg

DRUGS (8)
  1. CARBIDOPA\LEVODOPA [Suspect]
     Active Substance: CARBIDOPA\LEVODOPA
     Indication: Parkinson^s disease
     Route: 050
     Dates: start: 20180117
  2. CARBIDOPA\LEVODOPA [Suspect]
     Active Substance: CARBIDOPA\LEVODOPA
     Route: 050
  3. Preservision areds (Ascorbic acid;Betacarotene;Cupric oxide;Tocophe... [Concomitant]
     Indication: Dry eye
     Dosage: 2 DOSAGE FORMS
  4. Centrum (Minerals nos;Vitamins nos) [Concomitant]
     Indication: Nutritional supplementation
     Dosage: 1 DOSAGE FORMS
  5. Selegiline HCL (Selegiline hydrochloride) [Concomitant]
     Indication: Parkinson^s disease
     Dosage: 5 MILLIGRAM
  6. Paroxetine (Paroxetine mesilate) [Concomitant]
     Indication: Anxiety
     Dosage: 40 MILLIGRAM
  7. Carbidopa/levodopa (Carbidopa;Levodopa) [Concomitant]
     Indication: Parkinson^s disease
     Dosage: 50MG-200MG
  8. Carbidopa/levodopa (Carbidopa;Levodopa) [Concomitant]
     Indication: Parkinson^s disease
     Dosage: 25-100MG

REACTIONS (5)
  - Small intestinal obstruction [Not Recovered/Not Resolved]
  - Abdominal pain [Recovered/Resolved]
  - Device issue [Not Recovered/Not Resolved]
  - Pyrexia [Recovered/Resolved]
  - SARS-CoV-2 test positive [Recovered/Resolved]

NARRATIVE: CASE EVENT DATE: 20220901
